FAERS Safety Report 5704731-2 (Version None)
Quarter: 2008Q2

REPORT INFORMATION
  Report Type: 
  Country: None (occurrence: None)
  Receive Date: 20080414
  Receipt Date: 20080402
  Transmission Date: 20081010
  Serious: Yes (Other)
  Sender: FDA-Public Use
  Company Number: US-PFIZER INC-2005166186

PATIENT
  Sex: Female
  Weight: 54.4 kg

DRUGS (5)
  1. LYRICA [Suspect]
     Indication: PAIN IN EXTREMITY
     Dates: start: 20041201, end: 20080301
  2. LYRICA [Suspect]
     Indication: NEUROPATHY PERIPHERAL
  3. VALIUM [Concomitant]
     Route: 065
  4. TRAMADOL HYDROCHLORIDE AND ACETAMINOPHEN [Concomitant]
     Route: 065
  5. ULTRAM [Concomitant]

REACTIONS (7)
  - APHONIA [None]
  - CHOKING [None]
  - DIZZINESS [None]
  - DYSPNOEA [None]
  - FATIGUE [None]
  - FEELING DRUNK [None]
  - NAUSEA [None]
